FAERS Safety Report 7334569-4 (Version None)
Quarter: 2011Q1

REPORT INFORMATION
  Report Type: 
  Country: None (occurrence: None)
  Receive Date: 20110307
  Receipt Date: 20101025
  Transmission Date: 20110831
  Serious: No
  Sender: FDA-Public Use
  Company Number: A0875005A

PATIENT
  Age: 64 Year
  Sex: Female
  Weight: 72.7 kg

DRUGS (2)
  1. REQUIP [Suspect]
  2. HEADACHE MEDICATION [Concomitant]
     Indication: PROPHYLAXIS

REACTIONS (3)
  - HYPERTENSION [None]
  - HEADACHE [None]
  - ROAD TRAFFIC ACCIDENT [None]
